FAERS Safety Report 18262870 (Version 1)
Quarter: 2020Q3

REPORT INFORMATION
  Report Type: Spontaneous
  Country: US (occurrence: US)
  Receive Date: 20200914
  Receipt Date: 20200914
  Transmission Date: 20201103
  Serious: Yes (Death, Other)
  Sender: FDA-Public Use
  Company Number: US-PFIZER INC-2020353299

PATIENT
  Age: 50 Year
  Sex: Male
  Weight: 82.54 kg

DRUGS (1)
  1. IBRANCE [Suspect]
     Active Substance: PALBOCICLIB
     Indication: NEUROENDOCRINE TUMOUR
     Dosage: 75 MG, CYCLIC (1 DAILY FOR 21 DAYS)
     Route: 048
     Dates: start: 20200324

REACTIONS (5)
  - Off label use [Unknown]
  - Renal failure [Fatal]
  - Sepsis [Fatal]
  - Fungal infection [Fatal]
  - Product use in unapproved indication [Unknown]
